FAERS Safety Report 5315156-6 (Version None)
Quarter: 2007Q2

REPORT INFORMATION
  Report Type: 
  Country: None (occurrence: None)
  Receive Date: 20070502
  Receipt Date: 20070424
  Transmission Date: 20071010
  Serious: Yes (Hospitalization)
  Sender: FDA-Public Use
  Company Number: US-PFIZER INC-2007033839

PATIENT
  Sex: Male
  Weight: 72.6 kg

DRUGS (1)
  1. DETROL LA [Suspect]
     Indication: HYPERTONIC BLADDER
     Route: 048
     Dates: start: 20070322, end: 20070420

REACTIONS (3)
  - CONSTIPATION [None]
  - DYSURIA [None]
  - FAECALOMA [None]
